FAERS Safety Report 25093679 (Version 1)
Quarter: 2025Q1

REPORT INFORMATION
  Report Type: Report from Study
  Country: CA (occurrence: CA)
  Receive Date: 20250319
  Receipt Date: 20250319
  Transmission Date: 20250409
  Serious: Yes (Death, Other)
  Sender: CSL BEHRING
  Company Number: CA-BEH-2025199451

PATIENT
  Age: 76 Year
  Sex: Male
  Weight: 81.6 kg

DRUGS (13)
  1. HIZENTRA [Suspect]
     Active Substance: HUMAN IMMUNOGLOBULIN G
     Indication: Secondary immunodeficiency
     Dosage: PRODUCT STRENGTH: 12G, QW
     Route: 058
     Dates: start: 20230907
  2. CITALOPRAM [Concomitant]
     Active Substance: CITALOPRAM
  3. Biocal d [Concomitant]
  4. SULFATRIM [Concomitant]
     Active Substance: SULFAMETHOXAZOLE\TRIMETHOPRIM
  5. VALACYCLOVIR [Concomitant]
     Active Substance: VALACYCLOVIR HYDROCHLORIDE
  6. PANTOPRAZOLE [Concomitant]
     Active Substance: PANTOPRAZOLE
  7. AMLODIPINE [Concomitant]
     Active Substance: AMLODIPINE BESYLATE
  8. JARDIANCE [Concomitant]
     Active Substance: EMPAGLIFLOZIN
  9. VITAMIN B12 [Concomitant]
     Active Substance: CYANOCOBALAMIN
  10. LEVOFLOXACIN [Concomitant]
     Active Substance: LEVOFLOXACIN
  11. PREGABALIN [Concomitant]
     Active Substance: PREGABALIN
  12. ELIQUIS [Concomitant]
     Active Substance: APIXABAN
  13. INSULIN NOS [Concomitant]
     Active Substance: INSULIN NOS

REACTIONS (1)
  - Death [Fatal]

NARRATIVE: CASE EVENT DATE: 20241202
